FAERS Safety Report 6507958-5 (Version None)
Quarter: 2009Q4

REPORT INFORMATION
  Report Type: 
  Country: None (occurrence: None)
  Receive Date: 20091221
  Receipt Date: 20091211
  Transmission Date: 20100525
  Serious: Yes (Hospitalization)
  Sender: FDA-Public Use
  Company Number: B0617210A

PATIENT
  Sex: Female
  Weight: 90 kg

DRUGS (3)
  1. TOPOTECAN [Suspect]
     Dosage: 1412MG PER DAY
     Route: 042
     Dates: start: 20091208
  2. METOCLOPRAMIDE HYDROCHLORIDE [Concomitant]
     Indication: NAUSEA
     Dosage: 1AMP TWICE PER DAY
     Route: 042
     Dates: start: 20091208
  3. VOMEX [Concomitant]
     Indication: NAUSEA
     Dosage: 1AMP THREE TIMES PER DAY
     Route: 042
     Dates: start: 20091209

REACTIONS (1)
  - DEHYDRATION [None]
